FAERS Safety Report 9226034 (Version 5)
Quarter: 2014Q2

REPORT INFORMATION
  Report Type: Spontaneous
  Country: US (occurrence: US)
  Receive Date: 20130411
  Receipt Date: 20140509
  Transmission Date: 20141212
  Serious: No
  Sender: FDA-Public Use
  Company Number: US-009507513-1304USA003857

PATIENT
  Sex: Male

DRUGS (3)
  1. PROPECIA [Suspect]
     Indication: ALOPECIA
     Dosage: 1 MG, DAILY
     Route: 048
     Dates: start: 200403, end: 2006
  2. ALTACE [Concomitant]
     Indication: HYPERTENSION
     Dosage: UNK
     Dates: start: 2006
  3. ATENOLOL (+) CHLORTHALIDONE [Concomitant]
     Indication: HYPERTENSION
     Dosage: UNK
     Dates: start: 1996

REACTIONS (16)
  - Cognitive disorder [Not Recovered/Not Resolved]
  - Anxiety [Not Recovered/Not Resolved]
  - Sexual dysfunction [Not Recovered/Not Resolved]
  - Depression [Not Recovered/Not Resolved]
  - Hyperlipidaemia [Unknown]
  - Overweight [Unknown]
  - Hypothyroidism [Unknown]
  - Palpitations [Unknown]
  - Sinus disorder [Unknown]
  - Type 2 diabetes mellitus [Unknown]
  - Lung disorder [Unknown]
  - Respiratory tract congestion [Unknown]
  - Chest pain [Unknown]
  - Wheezing [Unknown]
  - Dyspnoea [Unknown]
  - Weight decreased [Unknown]
